FAERS Safety Report 10752259 (Version 1)
Quarter: 2015Q1

REPORT INFORMATION
  Report Type: Spontaneous
  Country: US (occurrence: US)
  Receive Date: 20150130
  Receipt Date: 20150130
  Transmission Date: 20150721
  Serious: No
  Sender: FDA-Public Use
  Company Number: US-ASTRAZENECA-2014SE17231

PATIENT
  Sex: Female

DRUGS (1)
  1. TENORMIN [Suspect]
     Active Substance: ATENOLOL
     Route: 065

REACTIONS (1)
  - Blood pressure increased [Unknown]
